FAERS Safety Report 25459809 (Version 1)
Quarter: 2025Q2

REPORT INFORMATION
  Report Type: Spontaneous
  Country: IT (occurrence: IT)
  Receive Date: 20250620
  Receipt Date: 20250620
  Transmission Date: 20250716
  Serious: Yes (Other)
  Sender: RANBAXY
  Company Number: IT-SUN PHARMACEUTICAL INDUSTRIES LTD-2025R1-512592

PATIENT
  Age: 67 Year
  Sex: Male

DRUGS (2)
  1. CARBOPLATIN [Suspect]
     Active Substance: CARBOPLATIN
     Indication: Lung neoplasm malignant
     Route: 065
  2. PACLITAXEL [Suspect]
     Active Substance: PACLITAXEL
     Indication: Lung neoplasm malignant
     Route: 065

REACTIONS (1)
  - Disease progression [Unknown]
